FAERS Safety Report 5859893-3 (Version None)
Quarter: 2008Q3

REPORT INFORMATION
  Report Type: 
  Country: None (occurrence: None)
  Receive Date: 20080827
  Receipt Date: 20080820
  Transmission Date: 20090109
  Serious: Yes (Other)
  Sender: FDA-Public Use
  Company Number: JP-AVENTIS-200812150JP

PATIENT
  Age: 79 Year
  Sex: Female

DRUGS (7)
  1. LANTUS [Suspect]
     Dosage: DOSE: 4 UNITS/DAY
     Route: 058
     Dates: start: 20080624, end: 20080709
  2. VOGLIBOSE [Concomitant]
  3. AMARYL [Concomitant]
     Route: 048
  4. CRESTOR [Concomitant]
     Dosage: DOSE: 2 TABLETS/DAY
  5. AMLODIPINE BESYLATE [Concomitant]
  6. LAXOSELIN [Concomitant]
  7. KAMIKIHITOU [Concomitant]

REACTIONS (1)
  - HEPATIC FUNCTION ABNORMAL [None]
